FAERS Safety Report 11987895 (Version 4)
Quarter: 2025Q1

REPORT INFORMATION
  Report Type: Spontaneous
  Country: US (occurrence: US)
  Receive Date: 20160202
  Receipt Date: 20250121
  Transmission Date: 20250409
  Serious: Yes (Hospitalization, Other)
  Sender: RANBAXY
  Company Number: US-MLMSERVICE-20160119-0140843-1

PATIENT
  Age: 56 Year
  Sex: Female

DRUGS (3)
  1. BUDESONIDE [Suspect]
     Active Substance: BUDESONIDE
     Indication: Malabsorption
     Route: 065
  2. PREDNISONE [Suspect]
     Active Substance: PREDNISONE
     Indication: Malabsorption
     Route: 065
  3. COUMADIN [Concomitant]
     Active Substance: WARFARIN SODIUM
     Indication: Deep vein thrombosis
     Route: 065

REACTIONS (1)
  - Condition aggravated [Recovering/Resolving]
